FAERS Safety Report 7518185-7 (Version None)
Quarter: 2011Q2

REPORT INFORMATION
  Report Type: 
  Country: None (occurrence: None)
  Receive Date: 20110602
  Receipt Date: 20110518
  Transmission Date: 20111010
  Serious: Yes (Death)
  Sender: FDA-Public Use
  Company Number: DE-CELGENEUS-062-20785-11052402

PATIENT
  Age: 16 Year
  Sex: Male
  Weight: 60 kg

DRUGS (21)
  1. THALIDOMIDE [Suspect]
     Indication: EWING'S SARCOMA
     Route: 048
     Dates: start: 20100901, end: 20110301
  2. LACTULOSE [Concomitant]
     Dosage: 30 MILLILITER
     Route: 065
  3. LAXANTIEN [Concomitant]
     Indication: CONSTIPATION
     Route: 065
  4. METAMIZOLE [Concomitant]
     Dosage: =40 DROPS 4X/D
     Route: 048
  5. ETOPOSIDE [Concomitant]
     Indication: EWING'S SARCOMA
     Route: 065
     Dates: start: 20100901, end: 20110301
  6. MORPHINE [Concomitant]
     Indication: PAIN
     Dosage: 96 MILLIGRAM
  7. LORAZEPAM [Concomitant]
     Indication: RESTLESSNESS
     Dosage: 1-2MG
     Route: 048
  8. THK [Concomitant]
     Indication: EPISTAXIS
     Route: 065
     Dates: start: 20110416, end: 20110416
  9. NALOXONE [Concomitant]
     Dosage: 30 MILLILITER
     Route: 048
  10. DEXAMETHASONE [Concomitant]
     Dosage: 24 MILLIGRAM
     Route: 051
  11. DEXAMETHASONE [Concomitant]
     Dosage: 16 MILLIGRAM
     Route: 051
     Dates: start: 20110429
  12. CALCIUM CARBONATE [Concomitant]
     Dosage: 1000 GRAM
     Route: 048
  13. HYDROMORPHONE HCL [Concomitant]
     Indication: PAIN
     Route: 048
  14. POTASSIUM CHLORIDE [Concomitant]
     Route: 065
  15. LEVETIRACETAM [Concomitant]
     Dosage: 500 MILLIGRAM
     Route: 065
     Dates: start: 20110405, end: 20110502
  16. DIAZEPAM [Concomitant]
     Indication: MUSCLE SPASMS
     Route: 065
  17. CETIRIZINE HCL [Concomitant]
     Dosage: 20 MILLIGRAM
     Route: 048
  18. TOPOTECAN [Concomitant]
     Indication: EWING'S SARCOMA
     Route: 065
     Dates: start: 20100901, end: 20110301
  19. LORAZEPAM [Concomitant]
     Indication: ANXIETY
  20. PROSTIGMIN BROMIDE [Concomitant]
     Indication: CONSTIPATION
     Route: 065
  21. COLECALCIFEROL [Concomitant]
     Dosage: 2000 IU (INTERNATIONAL UNIT)
     Route: 048

REACTIONS (1)
  - EWING'S SARCOMA [None]
